FAERS Safety Report 5821545-3 (Version None)
Quarter: 2008Q3

REPORT INFORMATION
  Report Type: 
  Country: None (occurrence: None)
  Receive Date: 20080724
  Receipt Date: 20080715
  Transmission Date: 20090109
  Serious: Yes (Hospitalization)
  Sender: FDA-Public Use
  Company Number: PHBS2008US05133

PATIENT
  Age: 76 Year
  Sex: Male

DRUGS (4)
  1. CYCLOSPORINE [Suspect]
     Indication: RENAL TRANSPLANT
     Dosage: UNK
     Dates: start: 19970101
  2. MYCOPHENOLATE MOFETIL [Suspect]
     Indication: RENAL TRANSPLANT
  3. PREDNISONE TAB [Suspect]
     Indication: RENAL TRANSPLANT
  4. INSULIN [Concomitant]

REACTIONS (27)
  - BLOOD CREATININE INCREASED [None]
  - CARDIAC FAILURE CONGESTIVE [None]
  - CARDIOMEGALY [None]
  - DYSPNOEA [None]
  - HAEMODIALYSIS [None]
  - HYPOXIA [None]
  - INFLAMMATION [None]
  - KIDNEY ENLARGEMENT [None]
  - KLEBSIELLA INFECTION [None]
  - LYMPHOCYTOSIS [None]
  - MENTAL STATUS CHANGES [None]
  - NEPHRECTOMY [None]
  - OEDEMA PERIPHERAL [None]
  - ORTHOPNOEA [None]
  - OXYGEN SATURATION DECREASED [None]
  - PULMONARY HYPERTENSION [None]
  - PULMONARY OEDEMA [None]
  - PYELONEPHRITIS [None]
  - PYREXIA [None]
  - RALES [None]
  - RENAL FAILURE ACUTE [None]
  - RENAL NECROSIS [None]
  - TRANSPLANT ABSCESS [None]
  - ULCER HAEMORRHAGE [None]
  - VENTRICULAR HYPERTROPHY [None]
  - VENTRICULAR SEPTAL DEFECT [None]
  - WHITE BLOOD CELL COUNT INCREASED [None]
